FAERS Safety Report 9931288 (Version 1)
Quarter: 2014Q1

REPORT INFORMATION
  Report Type: Spontaneous
  Country: FR (occurrence: FR)
  Receive Date: 20140228
  Receipt Date: 20140228
  Transmission Date: 20141002
  Serious: Yes (Other)
  Sender: FDA-Public Use
  Company Number: FR-ROCHE-1352683

PATIENT
  Age: 20 Year
  Sex: Female

DRUGS (3)
  1. ROACTEMRA [Suspect]
     Indication: RHEUMATOID ARTHRITIS
     Route: 042
     Dates: start: 201303, end: 20131220
  2. ETANERCEPT [Concomitant]
  3. METOJECT [Concomitant]
     Indication: RHEUMATOID ARTHRITIS
     Route: 058
     Dates: start: 201208

REACTIONS (1)
  - Hepatocellular injury [Recovering/Resolving]
